FAERS Safety Report 23315268 (Version 2)
Quarter: 2023Q4

REPORT INFORMATION
  Report Type: Report from Study
  Country: US (occurrence: US)
  Receive Date: 20231219
  Receipt Date: 20231227
  Transmission Date: 20240110
  Serious: Yes (Other)
  Sender: FDA-Public Use
  Company Number: US-ABBVIE-5547371

PATIENT
  Sex: Female
  Weight: 61 kg

DRUGS (1)
  1. QULIPTA [Suspect]
     Active Substance: ATOGEPANT
     Indication: Migraine
     Dosage: FORM STRENGTH: 60 MILLIGRAM
     Route: 048
     Dates: start: 20230913, end: 202311

REACTIONS (2)
  - Cataract [Unknown]
  - Headache [Not Recovered/Not Resolved]

NARRATIVE: CASE EVENT DATE: 20230101
